FAERS Safety Report 23891634 (Version 1)
Quarter: 2024Q2

REPORT INFORMATION
  Report Type: Report from Study
  Country: US (occurrence: US)
  Receive Date: 20240524
  Receipt Date: 20240524
  Transmission Date: 20240716
  Serious: Yes (Hospitalization)
  Sender: FDA-Public Use
  Company Number: US-ABBVIE-5769909

PATIENT
  Age: 53 Year
  Sex: Female

DRUGS (1)
  1. HUMIRA [Suspect]
     Active Substance: ADALIMUMAB
     Indication: Rheumatoid arthritis
     Dosage: CITRATE FREE? FORM STRENGTH: 40 MILLIGRAM
     Route: 058
     Dates: start: 20211214

REACTIONS (3)
  - Nervous system disorder [Not Recovered/Not Resolved]
  - Copper deficiency [Unknown]
  - Spinal disorder [Unknown]

NARRATIVE: CASE EVENT DATE: 20240501
